FAERS Safety Report 14176808 (Version 1)
Quarter: 2017Q4

REPORT INFORMATION
  Report Type: Spontaneous
  Country: US (occurrence: US)
  Receive Date: 20171110
  Receipt Date: 20171110
  Transmission Date: 20180321
  Serious: No
  Sender: FDA-Public Use
  Company Number: US-009507513-1710USA009571

PATIENT
  Age: 48 Year

DRUGS (4)
  1. PRIMAXIN IV [Suspect]
     Active Substance: CILASTATIN SODIUM\IMIPENEM
     Indication: ENDOCARDITIS
     Dosage: UNK
     Route: 042
  2. AMIKACIN [Concomitant]
     Active Substance: AMIKACIN
     Indication: ENDOCARDITIS
     Dosage: UNK
     Route: 042
  3. AMIKACIN [Concomitant]
     Active Substance: AMIKACIN
     Indication: MYCOBACTERIUM ABSCESSUS INFECTION
  4. PRIMAXIN IV [Suspect]
     Active Substance: CILASTATIN SODIUM\IMIPENEM
     Indication: MYCOBACTERIUM ABSCESSUS INFECTION

REACTIONS (1)
  - Off label use [Unknown]
